FAERS Safety Report 17724516 (Version 3)
Quarter: 2020Q2

REPORT INFORMATION
  Report Type: Spontaneous
  Country: US (occurrence: US)
  Receive Date: 20200429
  Receipt Date: 20200522
  Transmission Date: 20200714
  Serious: No
  Sender: FDA-Public Use
  Company Number: US-ALEXION PHARMACEUTICALS INC.-A202005932

PATIENT
  Age: 21 Year
  Sex: Female

DRUGS (2)
  1. STRENSIQ [Suspect]
     Active Substance: ASFOTASE ALFA
     Indication: HYPOPHOSPHATASIA
     Dosage: 114 MG, UNK
     Route: 065
     Dates: start: 20200422
  2. STRENSIQ [Suspect]
     Active Substance: ASFOTASE ALFA
     Dosage: 114 MG, UNK
     Route: 065
     Dates: start: 20200422

REACTIONS (5)
  - Injection site nodule [Unknown]
  - Blood alkaline phosphatase increased [Unknown]
  - Injection site bruising [Unknown]
  - Injection site pain [Unknown]
  - Injection site reaction [Unknown]

NARRATIVE: CASE EVENT DATE: 20200422
